FAERS Safety Report 7908729-5 (Version None)
Quarter: 2011Q4

REPORT INFORMATION
  Report Type: 
  Country: None (occurrence: None)
  Receive Date: 20111111
  Receipt Date: 20111108
  Transmission Date: 20120403
  Serious: Yes (Hospitalization, Other)
  Sender: FDA-Public Use
  Company Number: US-PFIZER INC-2011160926

PATIENT
  Sex: Female

DRUGS (5)
  1. LAMICTAL [Concomitant]
     Indication: ANXIETY
     Dosage: UNK
     Dates: start: 20040101
  2. CHANTIX [Suspect]
     Indication: SMOKING CESSATION THERAPY
     Dosage: 0.5MG AND 1MG
     Dates: start: 20070301, end: 20080201
  3. TRAVATAN [Concomitant]
     Indication: GLAUCOMA
     Dosage: UNK
     Dates: start: 20030101
  4. LAMICTAL [Concomitant]
     Indication: DEPRESSION
  5. ZYPREXA [Concomitant]
     Indication: BIPOLAR DISORDER
     Dosage: UNK
     Dates: start: 20050101, end: 20090101

REACTIONS (6)
  - CONVULSION [None]
  - LOSS OF CONSCIOUSNESS [None]
  - SUICIDE ATTEMPT [None]
  - DEPRESSION [None]
  - ANXIETY [None]
  - ASTHENIA [None]
